FAERS Safety Report 10244545 (Version 3)
Quarter: 2014Q3

REPORT INFORMATION
  Report Type: Spontaneous
  Country: IT (occurrence: IT)
  Receive Date: 20140618
  Receipt Date: 20140801
  Transmission Date: 20150326
  Serious: Yes (Hospitalization, Other)
  Sender: FDA-Public Use
  Company Number: IT-TEVA-480778ISR

PATIENT
  Age: 83 Year
  Sex: Male

DRUGS (11)
  1. SILODYX 8 MG [Concomitant]
     Dosage: 1 DOSAGE FORMS DAILY;
     Route: 048
     Dates: start: 20131125
  2. CONGESCOR 2.5 MG [Concomitant]
     Active Substance: BISOPROLOL FUMARATE
     Dosage: 1 TABLET DAILY;
     Route: 048
  3. AVODART [Concomitant]
     Active Substance: DUTASTERIDE
     Dosage: 1 TABLET DAILY;
     Route: 048
     Dates: start: 20131125
  4. LANSOX [Concomitant]
     Active Substance: LANSOPRAZOLE
     Dosage: 30 MILLIGRAM DAILY;
     Route: 048
  5. TICLOPIDINA DOROM 250 MG [Suspect]
     Active Substance: TICLOPIDINE
     Dosage: 2 TABLET DAILY; A TABLET AT LUNCH AND A TABLET AT DINNER
     Dates: start: 20131125, end: 20131230
  6. VASORETIC 20 + 12.5 [Concomitant]
     Active Substance: ENALAPRIL MALEATE\HYDROCHLOROTHIAZIDE
     Dosage: 1 TABLET DAILY;
     Route: 048
  7. ADALAT CRONO 30 MG [Concomitant]
     Active Substance: NIFEDIPINE
     Dosage: 1 TABLET DAILY; ADMINISTERED AT 08:00 AM AFTER BREAKFAST
     Route: 048
  8. PROVISACOR  10 MG [Concomitant]
     Dosage: 1 TABLET DAILY; IN THE EVENING
     Route: 048
  9. ZYLORIC 300 MG [Concomitant]
     Dosage: 1 TABLET DAILY; 10 DAYS/MONTH
     Route: 048
     Dates: start: 201309
  10. LEVOFLOXACINA EMIIDRATO 500 MG [Suspect]
     Active Substance: LEVOFLOXACIN
     Indication: BRONCHITIS
     Dosage: 500 MILLIGRAM DAILY;
     Route: 048
     Dates: start: 201312
  11. KOLIBRI [Suspect]
     Active Substance: ACETAMINOPHEN\TRAMADOL HYDROCHLORIDE
     Dosage: 1 DOSAGE FORMS DAILY;
     Route: 048
     Dates: start: 201309

REACTIONS (4)
  - Dermatitis exfoliative [Recovering/Resolving]
  - Pruritus generalised [Recovering/Resolving]
  - Myositis [Recovering/Resolving]
  - Tendon pain [Recovering/Resolving]

NARRATIVE: CASE EVENT DATE: 20131230
